FAERS Safety Report 9174167 (Version 1)
Quarter: 2013Q1

REPORT INFORMATION
  Report Type: Spontaneous
  Country: US (occurrence: US)
  Receive Date: 20130320
  Receipt Date: 20130320
  Transmission Date: 20140127
  Serious: No
  Sender: FDA-Public Use
  Company Number: US-PFIZER INC-2013088885

PATIENT
  Age: 65 Year
  Sex: Male

DRUGS (2)
  1. DOXYCYCLINE HYCLATE [Suspect]
     Indication: SPUTUM PURULENT
     Dosage: UNK
  2. DOXYCYCLINE HYCLATE [Suspect]
     Indication: WHEEZING

REACTIONS (1)
  - Drug ineffective [Unknown]
